FAERS Safety Report 10028172 (Version 2)
Quarter: 2014Q2

REPORT INFORMATION
  Report Type: Report from Study
  Country: US (occurrence: US)
  Receive Date: 20140321
  Receipt Date: 20140418
  Transmission Date: 20141212
  Serious: Yes (Other)
  Sender: FDA-Public Use
  Company Number: US-ABBVIE-14P-163-1212650-00

PATIENT
  Age: 46 Year
  Sex: Female

DRUGS (5)
  1. LUPRON DEPOT [Suspect]
     Indication: ENDOMETRIOSIS
     Dates: start: 1993, end: 1993
  2. LUPRON DEPOT [Suspect]
     Indication: ENDOMETRIOSIS
     Dates: start: 20140318
  3. HYDROXYZINE [Concomitant]
     Indication: PRODUCT USED FOR UNKNOWN INDICATION
  4. AMBIEN [Concomitant]
     Indication: PRODUCT USED FOR UNKNOWN INDICATION
  5. NORETHINDRONE [Concomitant]
     Indication: PRODUCT USED FOR UNKNOWN INDICATION
     Dates: start: 20140404

REACTIONS (12)
  - Laparoscopy [Unknown]
  - Oophorectomy [Unknown]
  - Cholecystectomy [Unknown]
  - Hernia repair [Unknown]
  - Menstrual disorder [Recovered/Resolved]
  - Dysmenorrhoea [Unknown]
  - Muscle spasms [Unknown]
  - Menorrhagia [Unknown]
  - Menorrhagia [Unknown]
  - Amenorrhoea [Unknown]
  - Hot flush [Unknown]
  - Affect lability [Unknown]
